FAERS Safety Report 7473797-4 (Version None)
Quarter: 2011Q2

REPORT INFORMATION
  Report Type: 
  Country: None (occurrence: None)
  Receive Date: 20110511
  Receipt Date: 20110502
  Transmission Date: 20111010
  Serious: Yes (Hospitalization)
  Sender: FDA-Public Use
  Company Number: FR-ASTRAZENECA-2011SE26753

PATIENT
  Sex: Female

DRUGS (1)
  1. ZOLMITRIPTAN [Suspect]
     Dosage: FROM 1 TO 4 FASTMELTS DAILY
     Route: 048
     Dates: end: 20110401

REACTIONS (1)
  - DRUG ABUSE [None]
